FAERS Safety Report 8823425 (Version 2)
Quarter: 2012Q4

REPORT INFORMATION
  Report Type: 
  Country: US (occurrence: US)
  Receive Date: 20121003
  Receipt Date: 20121031
  Transmission Date: 20130627
  Serious: Yes (Hospitalization)
  Sender: FDA-Public Use
  Company Number: US-ACTELION-A-NJ2012-71238

PATIENT
  Age: 61 Year
  Sex: Female

DRUGS (3)
  1. VELETRI [Suspect]
     Indication: PULMONARY ARTERIAL HYPERTENSION
     Dosage: 13 ng/kg, per min
     Route: 041
     Dates: start: 20120122
  2. ASPIRIN [Concomitant]
  3. COUMADIN [Concomitant]

REACTIONS (6)
  - Drug level changed [Unknown]
  - Device leakage [Unknown]
  - Central venous catheterisation [Unknown]
  - Catheter site haemorrhage [Recovered/Resolved]
  - Anaemia [Unknown]
  - Transfusion [Unknown]
